FAERS Safety Report 4712610-2 (Version None)
Quarter: 2005Q3

REPORT INFORMATION
  Report Type: 
  Country: None (occurrence: None)
  Receive Date: 20050712
  Receipt Date: 20050315
  Transmission Date: 20060218
  Serious: Yes (Hospitalization)
  Sender: FDA-Public Use
  Company Number: US-MERCK-0503USA03200

PATIENT
  Age: 49 Year
  Sex: Male
  Weight: 100 kg

DRUGS (17)
  1. VIOXX [Suspect]
     Indication: RHEUMATOID ARTHRITIS
     Route: 048
     Dates: start: 20000721, end: 20040117
  2. OXYCONTIN [Concomitant]
     Route: 065
  3. ALOCRIL [Concomitant]
     Route: 065
  4. PREDNISONE [Concomitant]
     Route: 065
  5. CYCLOBENZAPRINE HYDROCHLORIDE [Concomitant]
     Route: 065
  6. [THERAPY UNSPECIFIED] [Concomitant]
     Route: 065
  7. ENBREL [Concomitant]
     Route: 065
  8. METHOTREXATE [Concomitant]
     Route: 065
     Dates: start: 19991101
  9. LEVAQUIN [Concomitant]
     Route: 065
  10. NEOMYCIN SULFATE AND POLYMYXIN B SULFATE AND HYDROCORTISONE [Concomitant]
     Route: 065
  11. ZYBAN [Concomitant]
     Route: 065
  12. TUSSIONEX [Concomitant]
     Route: 065
  13. GUAIFENESIN [Concomitant]
     Route: 065
  14. GUAIFENESIN AND PSEUDOEPHEDRINE HYDROCHLORIDE [Concomitant]
     Route: 065
  15. CLINDAMYCIN [Concomitant]
     Route: 065
  16. FLUOCINONIDE [Concomitant]
     Route: 065
  17. ZITHROMAX [Concomitant]
     Route: 065

REACTIONS (2)
  - ADVERSE EVENT [None]
  - MYOCARDIAL INFARCTION [None]
